FAERS Safety Report 23696122 (Version 1)
Quarter: 2024Q2

REPORT INFORMATION
  Report Type: Spontaneous
  Country: HR (occurrence: HR)
  Receive Date: 20240402
  Receipt Date: 20240402
  Transmission Date: 20240716
  Serious: Yes (Hospitalization, Other)
  Sender: FDA-Public Use
  Company Number: HR-ABBVIE-5699075

PATIENT
  Age: 81 Year
  Sex: Male

DRUGS (9)
  1. VENETOCLAX [Suspect]
     Active Substance: VENETOCLAX
     Indication: Chronic lymphocytic leukaemia
     Dosage: RUMP UP 10-20-25-50 MG
     Route: 048
     Dates: start: 20240213, end: 20240226
  2. VENETOCLAX [Suspect]
     Active Substance: VENETOCLAX
     Indication: Chronic lymphocytic leukaemia
     Route: 048
     Dates: start: 20240130, end: 20240213
  3. VENETOCLAX [Suspect]
     Active Substance: VENETOCLAX
     Indication: Chronic lymphocytic leukaemia
     Route: 048
     Dates: start: 20220224, end: 20220225
  4. VENETOCLAX [Suspect]
     Active Substance: VENETOCLAX
     Indication: Chronic lymphocytic leukaemia
     Route: 048
     Dates: start: 20240227, end: 202403
  5. VENETOCLAX [Suspect]
     Active Substance: VENETOCLAX
     Indication: Chronic lymphocytic leukaemia
     Route: 048
     Dates: start: 20240312, end: 20240324
  6. RITUXIMAB [Concomitant]
     Active Substance: RITUXIMAB
     Indication: Chronic lymphocytic leukaemia
     Dosage: SECOND DOSE
     Dates: start: 20240130
  7. RITUXIMAB [Concomitant]
     Active Substance: RITUXIMAB
     Indication: Chronic lymphocytic leukaemia
     Dosage: THIRD
     Dates: start: 20240312
  8. RITUXIMAB [Concomitant]
     Active Substance: RITUXIMAB
     Indication: Chronic lymphocytic leukaemia
     Dosage: FIRST DOSE
     Dates: start: 20240123
  9. MEDROL [Concomitant]
     Active Substance: METHYLPREDNISOLONE
     Indication: Product used for unknown indication
     Dates: start: 20240123

REACTIONS (12)
  - Acute kidney injury [Recovered/Resolved]
  - Antithrombin III decreased [Recovered/Resolved]
  - Antithrombin III decreased [Not Recovered/Not Resolved]
  - Thrombocytopenia [Unknown]
  - Epistaxis [Recovered/Resolved]
  - Coagulopathy [Recovered/Resolved]
  - Platelet aggregation inhibition [Recovered/Resolved]
  - Chronic lymphocytic leukaemia recurrent [Not Recovered/Not Resolved]
  - Urinary tract infection [Unknown]
  - Haematuria [Recovered/Resolved]
  - Tumour lysis syndrome [Recovered/Resolved]
  - Fibrin D dimer increased [Not Recovered/Not Resolved]

NARRATIVE: CASE EVENT DATE: 20220225
